FAERS Safety Report 18078030 (Version 1)
Quarter: 2020Q3

REPORT INFORMATION
  Report Type: Spontaneous
  Country: US (occurrence: US)
  Receive Date: 20200728
  Receipt Date: 20200728
  Transmission Date: 20201103
  Serious: No
  Sender: FDA-Public Use
  Company Number: US-STRIDES ARCOLAB LIMITED-2020SP005656

PATIENT
  Age: 60 Year
  Sex: Female

DRUGS (4)
  1. ERYTHROMYCIN. [Concomitant]
     Active Substance: ERYTHROMYCIN
     Indication: ERYTHRASMA
     Dosage: UNK
     Route: 061
  2. CLARITHROMYCIN. [Suspect]
     Active Substance: CLARITHROMYCIN
     Indication: ERYTHRASMA
     Dosage: UNK
     Route: 048
  3. CLINDAMYCIN. [Concomitant]
     Active Substance: CLINDAMYCIN
     Indication: ERYTHRASMA
     Dosage: UNK
     Route: 061
  4. BETADINE [Concomitant]
     Active Substance: POVIDONE-IODINE
     Indication: ERYTHRASMA
     Dosage: UNK
     Route: 065

REACTIONS (1)
  - Off label use [Unknown]
